FAERS Safety Report 7289523-8 (Version None)
Quarter: 2011Q1

REPORT INFORMATION
  Report Type: 
  Country: None (occurrence: None)
  Receive Date: 20110211
  Receipt Date: 20110128
  Transmission Date: 20110831
  Serious: Yes (Death, Other)
  Sender: FDA-Public Use
  Company Number: CA-GENENTECH-301939

PATIENT
  Sex: Male

DRUGS (9)
  1. DIDROCAL [Concomitant]
     Indication: PRODUCT USED FOR UNKNOWN INDICATION
  2. OXEZE [Concomitant]
     Indication: PRODUCT USED FOR UNKNOWN INDICATION
     Route: 055
  3. FLOMAX [Concomitant]
     Indication: PRODUCT USED FOR UNKNOWN INDICATION
  4. VENTOLIN [Concomitant]
     Indication: PRODUCT USED FOR UNKNOWN INDICATION
  5. XOLAIR [Suspect]
     Dosage: UNK
     Route: 058
     Dates: start: 20100503
  6. ALVESCO [Concomitant]
     Indication: PRODUCT USED FOR UNKNOWN INDICATION
  7. DIOVAN HCT [Concomitant]
     Indication: PRODUCT USED FOR UNKNOWN INDICATION
  8. PREDNISONE [Concomitant]
     Indication: PRODUCT USED FOR UNKNOWN INDICATION
  9. XOLAIR [Suspect]
     Indication: ASTHMA
     Dosage: 225 MG, Q2W
     Route: 058
     Dates: start: 20100419

REACTIONS (4)
  - MYOCARDIAL INFARCTION [None]
  - ASTHMA [None]
  - RASH GENERALISED [None]
  - MUSCLE SPASMS [None]
